FAERS Safety Report 4515365-X (Version None)
Quarter: 2004Q4

REPORT INFORMATION
  Report Type: 
  Country: None (occurrence: None)
  Receive Date: 20041201
  Receipt Date: 20041122
  Transmission Date: 20050328
  Serious: Yes (Other)
  Sender: FDA-Public Use
  Company Number: BR-ROCHE-387047

PATIENT
  Age: 17 Year
  Sex: Male

DRUGS (1)
  1. ROACUTAN [Suspect]
     Indication: ACNE
     Route: 048
     Dates: start: 20040815, end: 20041105

REACTIONS (2)
  - DEPRESSION [None]
  - SUICIDE ATTEMPT [None]
